FAERS Safety Report 7065074-0 (Version None)
Quarter: 2010Q4

REPORT INFORMATION
  Report Type: 
  Country: None (occurrence: None)
  Receive Date: 20101019
  Receipt Date: 20101007
  Transmission Date: 20110411
  Serious: Yes (Hospitalization)
  Sender: FDA-Public Use
  Company Number: VAL_00467_2010

PATIENT
  Age: 82 Year
  Sex: Male

DRUGS (7)
  1. ROCALTROL [Suspect]
     Indication: PRODUCT USED FOR UNKNOWN INDICATION
     Dosage: (DF ORAL)
     Route: 048
     Dates: start: 20090428, end: 20100801
  2. BISOPROLOL [Concomitant]
  3. TORASEMIDE [Concomitant]
  4. SIMVASTATIN [Concomitant]
  5. MARCUMAR [Concomitant]
  6. EXFORGE [Concomitant]
  7. INSULIN [Concomitant]

REACTIONS (4)
  - CARDIAC ANEURYSM [None]
  - CARDIAC FAILURE [None]
  - CONDITION AGGRAVATED [None]
  - HYPERCALCAEMIA [None]
